FAERS Safety Report 6832090-0 (Version None)
Quarter: 2010Q3

REPORT INFORMATION
  Report Type: 
  Country: None (occurrence: None)
  Receive Date: 20100712
  Receipt Date: 20100630
  Transmission Date: 20110219
  Serious: Yes (Other)
  Sender: FDA-Public Use
  Company Number: JP-ROCHE-713904

PATIENT
  Age: 42 Year
  Sex: Male

DRUGS (8)
  1. CELLCEPT [Suspect]
     Indication: PROPHYLAXIS AGAINST TRANSPLANT REJECTION
     Route: 048
     Dates: start: 20020101, end: 20090101
  2. CELLCEPT [Suspect]
     Dosage: DOSE DECREASED.
     Route: 048
     Dates: start: 20090101, end: 20091201
  3. CELLCEPT [Suspect]
     Dosage: DOSE DECREASED.
     Route: 048
     Dates: start: 20091201
  4. CELLCEPT [Suspect]
     Route: 048
  5. CELLCEPT [Suspect]
     Route: 048
  6. TACROLIMUS [Concomitant]
     Dosage: NOTE: DOSAGE IS UNCERTAIN
     Route: 048
  7. PREDNISOLONE [Concomitant]
     Dosage: DOSE FORM: PERORAL AGENT
     Route: 048
     Dates: start: 20020101
  8. BREDININ [Concomitant]
     Route: 048
     Dates: start: 20091201

REACTIONS (7)
  - ACUTE RESPIRATORY DISTRESS SYNDROME [None]
  - DIARRHOEA [None]
  - DISSEMINATED INTRAVASCULAR COAGULATION [None]
  - ENTEROCOLITIS [None]
  - ESCHERICHIA INFECTION [None]
  - PNEUMONIA [None]
  - WHITE BLOOD CELL COUNT DECREASED [None]
